FAERS Safety Report 7493172-6 (Version None)
Quarter: 2011Q2

REPORT INFORMATION
  Report Type: 
  Country: None (occurrence: None)
  Receive Date: 20110520
  Receipt Date: 20110516
  Transmission Date: 20111010
  Serious: Yes (Congenital Anomaly, Other)
  Sender: FDA-Public Use
  Company Number: US-PFIZER INC-2007095367

PATIENT
  Sex: Female
  Weight: 3.4 kg

DRUGS (11)
  1. SUDAFED 12 HOUR [Concomitant]
     Dosage: UNK
  2. ZOLOFT [Suspect]
     Dosage: 100 MG, UNK
     Route: 064
  3. HYDROCORTISONE [Concomitant]
     Dosage: UNK
  4. PRILOSEC [Concomitant]
  5. PREVACID [Concomitant]
     Dosage: UNK
  6. ZANTAC [Concomitant]
  7. ELIDEL [Concomitant]
     Indication: ECZEMA
     Dosage: UNK
  8. ACETAMINOPHEN [Concomitant]
     Dosage: UNK
  9. ZITHROMAX [Concomitant]
     Dosage: UNK
  10. KEFLEX [Concomitant]
     Dosage: UNK
  11. AURALGAN [Concomitant]
     Dosage: UNK

REACTIONS (2)
  - EBSTEIN'S ANOMALY [None]
  - DRUG EXPOSURE DURING PREGNANCY [None]
